FAERS Safety Report 21764790 (Version 1)
Quarter: 2022Q4

REPORT INFORMATION
  Report Type: Report from Study
  Country: US (occurrence: US)
  Receive Date: 20221222
  Receipt Date: 20221222
  Transmission Date: 20230113
  Serious: No
  Sender: FDA-Public Use
  Company Number: US-ABBVIE-4200052

PATIENT
  Sex: Male

DRUGS (2)
  1. SKYRIZI [Suspect]
     Active Substance: RISANKIZUMAB-RZAA
     Indication: Psoriasis
     Dosage: 150 MG/ML: RX2: INJECT 1 DOSE (1 PEN, 150MG TOTAL) UNDER THE SKIN (SUBCUTANEOUS INJECTION) AT WEE...
     Route: 058
     Dates: start: 20220719
  2. ALBUTEROL AER HFA [Concomitant]
     Indication: Product used for unknown indication

REACTIONS (3)
  - Discomfort [Unknown]
  - Psoriasis [Unknown]
  - Drug ineffective [Unknown]

NARRATIVE: CASE EVENT DATE: 20220101
